FAERS Safety Report 11254563 (Version 1)
Quarter: 2015Q3

REPORT INFORMATION
  Report Type: Spontaneous
  Country: CN (occurrence: CN)
  Receive Date: 20150709
  Receipt Date: 20150709
  Transmission Date: 20151125
  Serious: Yes (Disabling)
  Sender: FDA-Public Use
  Company Number: CN-BAYER-2015-371358

PATIENT
  Age: 64 Year
  Sex: Female
  Weight: 69 kg

DRUGS (1)
  1. BAYASPIRIN [Suspect]
     Active Substance: ASPIRIN
     Indication: SECONDARY HYPERTENSION
     Dosage: 100 MG, QD
     Route: 048
     Dates: start: 20130201, end: 20150226

REACTIONS (2)
  - Gastrointestinal haemorrhage [Recovering/Resolving]
  - Duodenal ulcer [Recovering/Resolving]

NARRATIVE: CASE EVENT DATE: 20150223
